FAERS Safety Report 9731211 (Version 1)
Quarter: 2013Q4

REPORT INFORMATION
  Report Type: Report from Study
  Country: BR (occurrence: BR)
  Receive Date: 20131205
  Receipt Date: 20131205
  Transmission Date: 20140711
  Serious: Yes (Other)
  Sender: FDA-Public Use
  Company Number: BR-BRISTOL-MYERS SQUIBB COMPANY-19880673

PATIENT
  Sex: Female

DRUGS (1)
  1. ORENCIA FOR INJ [Suspect]
     Dosage: 3 INFS RECEIVED.

REACTIONS (2)
  - Pneumonia [Recovering/Resolving]
  - White blood cell count decreased [Recovering/Resolving]
